FAERS Safety Report 17299286 (Version 1)
Quarter: 2020Q1

REPORT INFORMATION
  Report Type: Spontaneous
  Country: US (occurrence: US)
  Receive Date: 20200121
  Receipt Date: 20200121
  Transmission Date: 20200409
  Serious: No
  Sender: FDA-Public Use
  Company Number: None

PATIENT
  Age: 39 Year
  Weight: 97.8 kg

DRUGS (1)
  1. YESCARTA [Suspect]
     Active Substance: AXICABTAGENE CILOLEUCEL
     Indication: LYMPHOMA
     Dates: start: 20191223, end: 20191223

REACTIONS (10)
  - Headache [None]
  - Neurotoxicity [None]
  - Pyrexia [None]
  - Somnolence [None]
  - Tachycardia [None]
  - Cardiorenal syndrome [None]
  - Fatigue [None]
  - Encephalopathy [None]
  - Dizziness [None]
  - Aphasia [None]

NARRATIVE: CASE EVENT DATE: 20191227
